FAERS Safety Report 5248120-6 (Version None)
Quarter: 2007Q1

REPORT INFORMATION
  Report Type: 
  Country: None (occurrence: None)
  Receive Date: 20070227
  Receipt Date: 20060202
  Transmission Date: 20070707
  Serious: No
  Sender: FDA-Public Use
  Company Number: US-BRISTOL-MYERS SQUIBB COMPANY-13206354

PATIENT
  Age: 82 Year
  Sex: Female

DRUGS (5)
  1. GLUCOPHAGE [Suspect]
  2. LIPITOR [Concomitant]
  3. NEURONTIN [Concomitant]
  4. TOPROL-XL [Concomitant]
  5. GLYBURIDE [Concomitant]

REACTIONS (3)
  - BLOOD GLUCOSE INCREASED [None]
  - RENAL IMPAIRMENT [None]
  - URINARY TRACT INFECTION [None]
